FAERS Safety Report 6299114-3 (Version None)
Quarter: 2009Q3

REPORT INFORMATION
  Report Type: 
  Country: None (occurrence: None)
  Receive Date: 20090804
  Receipt Date: 20090724
  Transmission Date: 20100115
  Serious: Yes (Other)
  Sender: FDA-Public Use
  Company Number: 2009009125

PATIENT
  Sex: Male

DRUGS (2)
  1. TREANDA [Suspect]
     Indication: CHRONIC LYMPHOCYTIC LEUKAEMIA
     Dosage: 90 MG/M2, INTRAVENOUS DRIP
     Route: 041
  2. SEPTRA [Concomitant]

REACTIONS (4)
  - HYPERHIDROSIS [None]
  - LYMPHADENOPATHY [None]
  - PANCYTOPENIA [None]
  - SPLENOMEGALY [None]
